FAERS Safety Report 25302593 (Version 2)
Quarter: 2025Q3

REPORT INFORMATION
  Report Type: Spontaneous
  Country: TW (occurrence: TW)
  Receive Date: 20250512
  Receipt Date: 20250915
  Transmission Date: 20251021
  Serious: Yes (Death, Other)
  Sender: NOVARTIS
  Company Number: TW-002147023-NVSC2025TW076260

PATIENT
  Age: 74 Year
  Sex: Male

DRUGS (1)
  1. KYMRIAH [Suspect]
     Active Substance: TISAGENLECLEUCEL
     Indication: Diffuse large B-cell lymphoma
     Route: 042
     Dates: start: 20240722, end: 20240722

REACTIONS (3)
  - Pneumonia [Fatal]
  - Cytokine release syndrome [Unknown]
  - Therapy partial responder [Unknown]
